FAERS Safety Report 25718898 (Version 1)
Quarter: 2025Q3

REPORT INFORMATION
  Report Type: Spontaneous
  Country: US (occurrence: US)
  Receive Date: 20250823
  Receipt Date: 20250823
  Transmission Date: 20251020
  Serious: No
  Sender: CHIESI
  Company Number: US-CHIESI-2025CHF05120

PATIENT
  Age: 33 Year
  Sex: Female

DRUGS (1)
  1. ELFABRIO [Suspect]
     Active Substance: PEGUNIGALSIDASE ALFA-IWXJ
     Indication: Product used for unknown indication
     Route: 042

REACTIONS (3)
  - Nausea [Recovering/Resolving]
  - Vomiting [Recovered/Resolved]
  - Abdominal discomfort [Unknown]
